FAERS Safety Report 22130222 (Version 2)
Quarter: 2023Q2

REPORT INFORMATION
  Report Type: Spontaneous
  Country: US (occurrence: US)
  Receive Date: 20230323
  Receipt Date: 20230403
  Transmission Date: 20230722
  Serious: Yes (Hospitalization, Other)
  Sender: FDA-Public Use
  Company Number: US-PFIZER INC-PV202300053094

PATIENT
  Age: 37 Year
  Sex: Male

DRUGS (1)
  1. GEMCITABINE HYDROCHLORIDE [Suspect]
     Active Substance: GEMCITABINE HYDROCHLORIDE
     Indication: T-cell lymphoma
     Dosage: UNK

REACTIONS (4)
  - Cytopenia [Unknown]
  - Performance status decreased [Recovering/Resolving]
  - Fatigue [Unknown]
  - Pyrexia [Unknown]
